FAERS Safety Report 8849601 (Version 1)
Quarter: 2012Q4

REPORT INFORMATION
  Report Type: Spontaneous
  Country: US (occurrence: None)
  Receive Date: 20121018
  Receipt Date: 20121018
  Transmission Date: 20130627
  Serious: Yes (Hospitalization)
  Sender: FDA-Public Use
  Company Number: None

PATIENT
  Age: 55 Year
  Sex: Female
  Weight: 90.72 kg

DRUGS (2)
  1. SMZ-TMP DS [Suspect]
     Indication: RESPIRATORY INFECTION
     Route: 048
     Dates: start: 20120417, end: 20120426
  2. SMZ-TMP DS [Suspect]
     Indication: RESPIRATORY INFECTION
     Route: 048
     Dates: start: 20120605, end: 20120618

REACTIONS (7)
  - Blood pressure decreased [None]
  - Cellulitis [None]
  - Pneumonia [None]
  - No therapeutic response [None]
  - Chest discomfort [None]
  - Respiratory tract infection [None]
  - Product quality issue [None]
